FAERS Safety Report 4561155-1 (Version None)
Quarter: 2005Q1

REPORT INFORMATION
  Report Type: 
  Country: None (occurrence: None)
  Receive Date: 20050124
  Receipt Date: 20050112
  Transmission Date: 20050727
  Serious: Yes (Other)
  Sender: FDA-Public Use
  Company Number: 2005-01-1237

PATIENT
  Age: 31 Year
  Sex: Female

DRUGS (4)
  1. GENTAMICIN [Suspect]
     Dosage: 2 DOSE FORMS INTRAVENOUS
     Route: 042
  2. GENTAMICIN [Suspect]
  3. AMPICILLIN [Concomitant]
  4. VENTOLIN [Concomitant]

REACTIONS (5)
  - DIZZINESS [None]
  - GAIT DISTURBANCE [None]
  - HYPOAESTHESIA [None]
  - MUSCULOSKELETAL STIFFNESS [None]
  - MYALGIA [None]
